FAERS Safety Report 10768359 (Version 2)
Quarter: 2015Q1

REPORT INFORMATION
  Report Type: Spontaneous
  Country: TR (occurrence: TR)
  Receive Date: 20150206
  Receipt Date: 20150304
  Transmission Date: 20150721
  Serious: Yes (Other)
  Sender: FDA-Public Use
  Company Number: TR-009507513-1502TUR001341

PATIENT
  Age: 13 Year
  Sex: Male

DRUGS (2)
  1. MONTELUKAST SODIUM. [Suspect]
     Active Substance: MONTELUKAST SODIUM
     Indication: ASTHMA
     Dosage: 5 MG, QD
     Route: 048
  2. FLUTICASONE PROPIONATE. [Concomitant]
     Active Substance: FLUTICASONE PROPIONATE
     Indication: ASTHMA
     Dosage: 125 MICROGRAM, BID
     Route: 055

REACTIONS (3)
  - Suicidal behaviour [Recovered/Resolved]
  - Depression [Recovered/Resolved]
  - Suicidal ideation [Recovered/Resolved]
